FAERS Safety Report 11791350 (Version 3)
Quarter: 2016Q1

REPORT INFORMATION
  Report Type: Spontaneous
  Country: US (occurrence: US)
  Receive Date: 20151201
  Receipt Date: 20160203
  Transmission Date: 20160525
  Serious: Yes (Hospitalization, Other)
  Sender: FDA-Public Use
  Company Number: US-BAYER-2015-475471

PATIENT
  Age: 32 Year
  Sex: Female

DRUGS (14)
  1. LUNESTA [Concomitant]
     Active Substance: ESZOPICLONE
     Indication: INSOMNIA
  2. NYSTATIN. [Concomitant]
     Active Substance: NYSTATIN
  3. TRAZODONE [Concomitant]
     Active Substance: TRAZODONE HYDROCHLORIDE
     Dosage: 50 MG, QD
  4. TEMAZEPAM. [Concomitant]
     Active Substance: TEMAZEPAM
     Dosage: 15 MG, HS, AS NEEDED
  5. ADIPEX-P [Concomitant]
     Active Substance: PHENTERMINE HYDROCHLORIDE
     Dosage: 37.5 MG, QD
  6. MIRENA [Suspect]
     Active Substance: LEVONORGESTREL
     Indication: CONTRACEPTION
     Dosage: 20 MCG/24HR, CONT
     Route: 015
     Dates: start: 20130705, end: 20150429
  7. AMBIEN [Concomitant]
     Active Substance: ZOLPIDEM TARTRATE
     Dosage: 10 MG, HS
     Route: 048
  8. TRIAMCINOLONE ACETONIDE. [Concomitant]
     Active Substance: TRIAMCINOLONE ACETONIDE
     Dosage: UNK
     Dates: start: 20141208
  9. ADIPEX-P [Concomitant]
     Active Substance: PHENTERMINE HYDROCHLORIDE
     Dosage: 31.5 MG, UNK
  10. HYDROXYZINE [Concomitant]
     Active Substance: HYDROXYZINE\HYDROXYZINE HYDROCHLORIDE
     Dosage: 25 MG, HS, AS NEEDED
  11. ZITHROMAX [Concomitant]
     Active Substance: AZITHROMYCIN DIHYDRATE
  12. MOBIC [Concomitant]
     Active Substance: MELOXICAM
     Dosage: 15 MG, ONCE A DAY , PRN
  13. PRENATAL VITAMINS [Concomitant]
     Active Substance: VITAMINS
  14. BUSPIRONE [Concomitant]
     Active Substance: BUSPIRONE HYDROCHLORIDE
     Dosage: 7.5 MG, BID

REACTIONS (23)
  - Procedural pain [None]
  - Vaginal discharge [None]
  - Infertility female [None]
  - Abdominal distension [None]
  - Vaginal haemorrhage [None]
  - Depressive symptom [None]
  - Device dislocation [None]
  - Genital haemorrhage [None]
  - Peritoneal adhesions [None]
  - Infection [None]
  - Nausea [None]
  - Pelvic adhesions [None]
  - Back pain [None]
  - Stress [None]
  - Dyspareunia [None]
  - Neck pain [None]
  - Anxiety [None]
  - Loss of libido [Not Recovered/Not Resolved]
  - Abdominal pain [None]
  - Medical device discomfort [None]
  - Insomnia [Not Recovered/Not Resolved]
  - Pyrexia [None]
  - Device issue [None]

NARRATIVE: CASE EVENT DATE: 201307
